FAERS Safety Report 5873799-5 (Version None)
Quarter: 2008Q3

REPORT INFORMATION
  Report Type: 
  Country: None (occurrence: None)
  Receive Date: 20080903
  Receipt Date: 20080829
  Transmission Date: 20090109
  Serious: Yes (Life-Threatening, Hospitalization)
  Sender: FDA-Public Use
  Company Number: SP02045

PATIENT
  Age: 67 Year
  Sex: Male

DRUGS (1)
  1. MOVIPREP [Suspect]
     Indication: COLONOSCOPY
     Dosage: 1 LIT (1 LIT), ORAL
     Route: 048
     Dates: start: 20080806, end: 20080806

REACTIONS (3)
  - COLON CANCER [None]
  - LARGE INTESTINE PERFORATION [None]
  - PERITONITIS [None]
